FAERS Safety Report 20662829 (Version 2)
Quarter: 2022Q3

REPORT INFORMATION
  Report Type: Spontaneous
  Country: US (occurrence: US)
  Receive Date: 20220401
  Receipt Date: 20220712
  Transmission Date: 20221027
  Serious: Yes (Death, Other)
  Sender: FDA-Public Use
  Company Number: US-REGENERON PHARMACEUTICALS, INC.-2022-28466

PATIENT
  Sex: Female

DRUGS (2)
  1. EYLEA [Suspect]
     Active Substance: AFLIBERCEPT
     Indication: Neovascular age-related macular degeneration
     Dosage: UNK, IN RIGHT EYE, ABOUT EVERY 9-10 WEEKS, INJECTION
     Route: 031
     Dates: end: 20200430
  2. EYLEA [Suspect]
     Active Substance: AFLIBERCEPT
     Dosage: UNK, IN LEFT EYE, ABOUT EVERY 9-10 WEEKS, INJECTION
     Route: 031
     Dates: end: 20200508

REACTIONS (1)
  - Death [Fatal]

NARRATIVE: CASE EVENT DATE: 20210616
